FAERS Safety Report 16125920 (Version 2)
Quarter: 2019Q2

REPORT INFORMATION
  Report Type: Spontaneous
  Country: DE (occurrence: DE)
  Receive Date: 20190328
  Receipt Date: 20190528
  Transmission Date: 20190711
  Serious: Yes (Hospitalization)
  Sender: FDA-Public Use
  Company Number: DE-BIOGEN-2019BI00715251

PATIENT
  Sex: Male
  Weight: 96 kg

DRUGS (1)
  1. TYSABRI [Suspect]
     Active Substance: NATALIZUMAB
     Indication: RELAPSING-REMITTING MULTIPLE SCLEROSIS
     Dosage: ABOUT 29 TYSABRI INFUSIONS
     Route: 042
     Dates: end: 201903

REACTIONS (1)
  - Multiple sclerosis [Unknown]
